FAERS Safety Report 5771329-X (Version None)
Quarter: 2008Q2

REPORT INFORMATION
  Report Type: 
  Country: None (occurrence: None)
  Receive Date: 20080613
  Receipt Date: 20080530
  Transmission Date: 20081010
  Serious: No
  Sender: FDA-Public Use
  Company Number: US-BAYER-200824565NA

PATIENT
  Age: 45 Year
  Sex: Female
  Weight: 81 kg

DRUGS (4)
  1. YAZ [Suspect]
     Indication: PREMENSTRUAL SYNDROME
     Dates: start: 20080522, end: 20080530
  2. PROZAC [Concomitant]
  3. AMBIEN [Concomitant]
  4. LAMICTAL [Concomitant]

REACTIONS (4)
  - ABDOMINAL DISTENSION [None]
  - BEDRIDDEN [None]
  - MIGRAINE [None]
  - WEIGHT INCREASED [None]
